FAERS Safety Report 22064655 (Version 1)
Quarter: 2023Q1

REPORT INFORMATION
  Report Type: Spontaneous
  Country: TR (occurrence: TR)
  Receive Date: 20230306
  Receipt Date: 20230306
  Transmission Date: 20230418
  Serious: Yes (Other)
  Sender: FDA-Public Use
  Company Number: TR-MYLANLABS-2023M1023756

PATIENT
  Age: 34 Year
  Sex: Female

DRUGS (15)
  1. IMIQUIMOD [Suspect]
     Active Substance: IMIQUIMOD
     Indication: Vulval disorder
     Dosage: UNK
     Route: 061
  2. IMIQUIMOD [Suspect]
     Active Substance: IMIQUIMOD
     Indication: Skin papilloma
  3. IMIQUIMOD [Suspect]
     Active Substance: IMIQUIMOD
     Indication: Papilloma viral infection
  4. FLUOROURACIL [Suspect]
     Active Substance: FLUOROURACIL
     Indication: Vulval disorder
     Dosage: UNK
     Route: 061
  5. FLUOROURACIL [Suspect]
     Active Substance: FLUOROURACIL
     Indication: Skin papilloma
  6. FLUOROURACIL [Suspect]
     Active Substance: FLUOROURACIL
     Indication: Papilloma viral infection
  7. CIDOFOVIR [Concomitant]
     Active Substance: CIDOFOVIR
     Indication: Vulval disorder
     Dosage: UNK UNK, BID
     Route: 061
  8. CIDOFOVIR [Concomitant]
     Active Substance: CIDOFOVIR
     Indication: Skin papilloma
  9. CIDOFOVIR [Concomitant]
     Active Substance: CIDOFOVIR
     Indication: Papilloma viral infection
  10. PREDNISOLONE [Concomitant]
     Active Substance: PREDNISOLONE
     Indication: Immunosuppression
     Dosage: UNK
     Route: 065
  11. TACROLIMUS [Concomitant]
     Active Substance: TACROLIMUS
     Indication: Immunosuppression
     Dosage: UNK
     Route: 065
  12. MYCOPHENOLATE MOFETIL [Concomitant]
     Active Substance: MYCOPHENOLATE MOFETIL
     Indication: Immunosuppression
     Dosage: UNK
     Route: 065
  13. PROPYLENE GLYCOL [Concomitant]
     Active Substance: PROPYLENE GLYCOL
     Indication: Vehicle solution use
     Dosage: UNK
     Route: 061
  14. ALCOHOL [Concomitant]
     Active Substance: ALCOHOL
     Indication: Vehicle solution use
     Dosage: UNK
     Route: 061
  15. WATER [Concomitant]
     Active Substance: WATER
     Indication: Vehicle solution use
     Dosage: UNK
     Route: 061

REACTIONS (1)
  - Drug ineffective [Unknown]
